FAERS Safety Report 15017559 (Version 1)
Quarter: 2018Q2

REPORT INFORMATION
  Report Type: Spontaneous
  Country: US (occurrence: US)
  Receive Date: 20180523
  Receipt Date: 20180523
  Transmission Date: 20180711
  Serious: Yes (Disabling)
  Sender: FDA-Public Use
  Company Number: None

PATIENT
  Age: 69 Year
  Sex: Female
  Weight: 95.25 kg

DRUGS (9)
  1. VITAMINS [Concomitant]
     Active Substance: VITAMINS
  2. TYLENOL [Concomitant]
     Active Substance: ACETAMINOPHEN
  3. HYZAAR [Suspect]
     Active Substance: HYDROCHLOROTHIAZIDE\LOSARTAN POTASSIUM
     Indication: HYPERTENSION
     Dates: start: 200906, end: 20180401
  4. LOSARTAN 100MGS/DAILY [Suspect]
     Active Substance: LOSARTAN POTASSIUM
  5. TRIAMTERENE. [Concomitant]
     Active Substance: TRIAMTERENE
  6. PROBIOTIC [Concomitant]
     Active Substance: PROBIOTICS NOS
  7. TUMS [Concomitant]
     Active Substance: CALCIUM CARBONATE
  8. ATENOLOL. [Concomitant]
     Active Substance: ATENOLOL
  9. BENADRYL [Concomitant]
     Active Substance: DIPHENHYDRAMINE HYDROCHLORIDE

REACTIONS (10)
  - Gait disturbance [None]
  - Dyspepsia [None]
  - Fatigue [None]
  - Muscle spasms [None]
  - Vision blurred [None]
  - Balance disorder [None]
  - Wheezing [None]
  - Dyspnoea [None]
  - Flatulence [None]
  - Pruritus [None]

NARRATIVE: CASE EVENT DATE: 20171212
